FAERS Safety Report 4681019-2 (Version None)
Quarter: 2005Q2

REPORT INFORMATION
  Report Type: 
  Country: None (occurrence: None)
  Receive Date: 20050601
  Receipt Date: 20050601
  Transmission Date: 20051028
  Serious: Yes (Hospitalization)
  Sender: FDA-Public Use
  Company Number: None

PATIENT
  Age: 54 Year
  Sex: Male

DRUGS (1)
  1. LISINOPRIL [Suspect]
     Dosage: 10MG  DAILY ORAL
     Route: 048

REACTIONS (8)
  - ANGIONEUROTIC OEDEMA [None]
  - DIZZINESS [None]
  - DYSPHONIA [None]
  - DYSPNOEA [None]
  - ERYTHEMA [None]
  - GENERALISED OEDEMA [None]
  - PRURITUS [None]
  - URTICARIA GENERALISED [None]
